FAERS Safety Report 23986431 (Version 1)
Quarter: 2024Q2

REPORT INFORMATION
  Report Type: Report from Study
  Country: BR (occurrence: BR)
  Receive Date: 20240618
  Receipt Date: 20240618
  Transmission Date: 20240716
  Serious: Yes (Other)
  Sender: FDA-Public Use
  Company Number: BR-002147023-NVSC2024BR126405

PATIENT
  Sex: Female

DRUGS (1)
  1. KISQALI [Suspect]
     Active Substance: RIBOCICLIB
     Indication: Product used for unknown indication
     Dosage: DISCONTINUED IN OCT 2023 OR NOV 2023
     Route: 065
     Dates: end: 2023

REACTIONS (4)
  - Renal failure [Recovered/Resolved with Sequelae]
  - Skin reaction [Recovering/Resolving]
  - Vitiligo [Recovering/Resolving]
  - Skin lesion [Recovering/Resolving]
